FAERS Safety Report 22159244 (Version 1)
Quarter: 2023Q1

REPORT INFORMATION
  Report Type: Spontaneous
  Country: HK (occurrence: None)
  Receive Date: 20230331
  Receipt Date: 20230331
  Transmission Date: 20230418
  Serious: Yes (Other)
  Sender: FDA-Public Use
  Company Number: HK-ROCHE-3320575

PATIENT
  Sex: Female

DRUGS (13)
  1. RITUXIMAB [Suspect]
     Active Substance: RITUXIMAB
     Indication: Diffuse large B-cell lymphoma
     Dosage: 1ST LINE SYSTEMIC TREATMENT, BENDAMUSTINE + RITUXIMAB
     Route: 065
     Dates: start: 20210901, end: 20220201
  2. RITUXIMAB [Suspect]
     Active Substance: RITUXIMAB
     Dosage: 2ND LINE SYSTEMIC TREATMENT, POLATUZUMAB VEDOTIN-BASED REGIMEN (E.G. P-BR) POLA-MINI CHOP
     Route: 065
     Dates: start: 20220601, end: 20220901
  3. RITUXIMAB [Suspect]
     Active Substance: RITUXIMAB
     Dosage: 4TH LINE SYSTEMIC TREATMENT, R-DHAP, NO RESPONSE/STABLE DISEASE (SD)
     Route: 065
     Dates: start: 20230101, end: 20230301
  4. POLIVY [Suspect]
     Active Substance: POLATUZUMAB VEDOTIN-PIIQ
     Indication: Diffuse large B-cell lymphoma
     Dosage: 2ND LINE SYSTEMIC TREATMENT, POLATUZUMAB VEDOTIN-BASED REGIMEN (E.G.P-BR) POLA-MINI CHOP
     Route: 065
     Dates: start: 20220601, end: 20220901
  5. VENETOCLAX [Suspect]
     Active Substance: VENETOCLAX
     Indication: Diffuse large B-cell lymphoma
     Dosage: 3RD LINE SYSTEMIC TREATMENT, VENETOCLAX +CYCLOPHOSPHAMIDE
     Route: 065
     Dates: start: 20221201, end: 20230101
  6. BENDAMUSTINE [Suspect]
     Active Substance: BENDAMUSTINE
     Indication: Diffuse large B-cell lymphoma
     Dosage: 1ST LINE SYSTEMIC TREATMENT, BENDAMUSTINE + RITUXIMAB
     Route: 065
     Dates: start: 20210901, end: 20220201
  7. BENDAMUSTINE [Suspect]
     Active Substance: BENDAMUSTINE
     Dosage: 2ND LINE SYSTEMIC TREATMENT, POLATUZUMAB VEDOTIN-BASED REGIMEN (E.G. P-BR) POLA-MINI CHOP
     Route: 065
     Dates: start: 20220601, end: 20220901
  8. CYCLOPHOSPHAMIDE\DOXORUBICIN\PREDNISONE\VINCRISTINE [Suspect]
     Active Substance: CYCLOPHOSPHAMIDE\DOXORUBICIN\PREDNISONE\VINCRISTINE
     Indication: Diffuse large B-cell lymphoma
     Dosage: 2ND LINE SYSTEMIC TREATMENT, POLATUZUMAB VEDOTIN-BASED REGIMEN (E.G.P-BR) POLA-MINI CHOP
     Route: 065
     Dates: start: 20220601, end: 20220901
  9. CYCLOPHOSPHAMIDE [Suspect]
     Active Substance: CYCLOPHOSPHAMIDE
     Indication: Diffuse large B-cell lymphoma
     Dosage: 3RD LINE SYSTEMIC TREATMENT, VENETOCLAX +CYCLOPHOSPHAMIDE
     Route: 065
     Dates: start: 20221201, end: 20230101
  10. PREDNISONE [Suspect]
     Active Substance: PREDNISONE
     Indication: Diffuse large B-cell lymphoma
     Dosage: 3RD LINE SYSTEMIC TREATMENT, HYDROXYDAUNORUBICIN + ETOPOSIDE + PREDNISONE
     Route: 065
     Dates: start: 20221201, end: 20230101
  11. EPIRUBICIN [Suspect]
     Active Substance: EPIRUBICIN
     Indication: Diffuse large B-cell lymphoma
     Dosage: 3RD LINE SYSTEMIC TREATMENT, HYDROXYDAUNORUBICIN + ETOPOSIDE + PREDNISONE
     Route: 065
     Dates: start: 20221201, end: 20230101
  12. ETOPOSIDE [Suspect]
     Active Substance: ETOPOSIDE
     Indication: Diffuse large B-cell lymphoma
     Dosage: 3RD LINE SYSTEMIC TREATMENT, HYDROXYDAUNORUBICIN + ETOPOSIDE + PREDNISONE
     Route: 065
     Dates: start: 20221201, end: 20230101
  13. CISPLATIN\CYTARABINE\DEXAMETHASONE [Suspect]
     Active Substance: CISPLATIN\CYTARABINE\DEXAMETHASONE
     Indication: Diffuse large B-cell lymphoma
     Dosage: 4TH LINE SYSTEMIC TREATMENT, R-DHAP, NO RESPONSE/STABLE DISEASE (SD)
     Route: 065
     Dates: start: 20230101, end: 20230301

REACTIONS (4)
  - Diffuse large B-cell lymphoma [Unknown]
  - Blood lactate dehydrogenase increased [Unknown]
  - Ill-defined disorder [Unknown]
  - Disease progression [Unknown]
